FAERS Safety Report 16110341 (Version 4)
Quarter: 2019Q4

REPORT INFORMATION
  Report Type: Report from Study
  Country: US (occurrence: US)
  Receive Date: 20190325
  Receipt Date: 20191216
  Transmission Date: 20200122
  Serious: No
  Sender: FDA-Public Use
  Company Number: PHEH2019US012603

PATIENT
  Sex: Female

DRUGS (1)
  1. ENTRESTO [Suspect]
     Active Substance: SACUBITRIL\VALSARTAN
     Indication: CARDIAC FAILURE
     Route: 048

REACTIONS (7)
  - Contusion [Unknown]
  - Malaise [Unknown]
  - Hypotension [Unknown]
  - Blood potassium increased [Unknown]
  - Back pain [Unknown]
  - Peripheral swelling [Unknown]
  - Gait disturbance [Unknown]
